FAERS Safety Report 8363539-2 (Version None)
Quarter: 2012Q2

REPORT INFORMATION
  Report Type: 
  Country: None (occurrence: None)
  Receive Date: 20120516
  Receipt Date: 20120510
  Transmission Date: 20120825
  Serious: Yes (Hospitalization)
  Sender: FDA-Public Use
  Company Number: PHHO2012US007387

PATIENT
  Sex: Female

DRUGS (6)
  1. VALSARTAN [Suspect]
     Dosage: 320 MG, QD
     Route: 048
     Dates: start: 20120213
  2. CALCIO [Concomitant]
     Dosage: 600 MG, QD
     Dates: start: 20110919
  3. NEBIVOLOL [Concomitant]
     Dosage: UNK
     Dates: end: 20120212
  4. NEBIVOLOL [Concomitant]
     Dosage: UNK
     Dates: start: 20120213
  5. VALSARTAN [Suspect]
     Indication: HYPERTENSION
     Dosage: 160 MG, QD
     Route: 048
     Dates: start: 20111101, end: 20111114
  6. VALSARTAN [Suspect]
     Dosage: 320 MG, QD
     Route: 048
     Dates: start: 20111115, end: 20120212

REACTIONS (1)
  - ANXIETY [None]
